FAERS Safety Report 9332685 (Version 1)
Quarter: 2013Q2

REPORT INFORMATION
  Report Type: Spontaneous
  Country: US (occurrence: US)
  Receive Date: 20130606
  Receipt Date: 20130606
  Transmission Date: 20140414
  Serious: Yes (Other)
  Sender: FDA-Public Use
  Company Number: PHEH2013US011938

PATIENT
  Age: 45 Year
  Sex: Male

DRUGS (5)
  1. GILENYA [Suspect]
     Indication: MULTIPLE SCLEROSIS
     Dosage: 0.5 MG, QD
     Route: 048
     Dates: start: 20120605, end: 20130527
  2. BACLOFEN [Concomitant]
  3. OXYCODONE [Concomitant]
  4. AMANTADINE [Concomitant]
  5. OXYBUTYNIN [Concomitant]

REACTIONS (1)
  - Encephalitis [Unknown]
